FAERS Safety Report 7022042-2 (Version None)
Quarter: 2010Q3

REPORT INFORMATION
  Report Type: 
  Country: None (occurrence: None)
  Receive Date: 20100930
  Receipt Date: 20100920
  Transmission Date: 20110219
  Serious: Yes (Hospitalization, Other)
  Sender: FDA-Public Use
  Company Number: US-US-EMD SERONO, INC.-231901J09USA

PATIENT
  Sex: Female
  Weight: 54 kg

DRUGS (4)
  1. REBIF [Suspect]
     Indication: PRODUCT USED FOR UNKNOWN INDICATION
     Route: 058
     Dates: start: 20091009, end: 20090101
  2. REBIF [Suspect]
     Route: 058
     Dates: start: 20090101, end: 20091101
  3. REBIF [Suspect]
     Dates: end: 20100501
  4. DITROPAN [Interacting]
     Indication: BLADDER DISORDER
     Dates: start: 20091001

REACTIONS (5)
  - FEELING ABNORMAL [None]
  - HALLUCINATION [None]
  - MEDICAL DEVICE COMPLICATION [None]
  - PNEUMONIA [None]
  - URINARY TRACT INFECTION [None]
